FAERS Safety Report 16324597 (Version 6)
Quarter: 2020Q3

REPORT INFORMATION
  Report Type: Other
  Country: DE (occurrence: DE)
  Receive Date: 20190517
  Receipt Date: 20200830
  Transmission Date: 20201102
  Serious: No
  Sender: FDA-Public Use
  Company Number: DE-ROCHE-2320693

PATIENT
  Age: 28 Year
  Sex: Female
  Weight: 58 kg

DRUGS (22)
  1. OCRELIZUMAB. [Suspect]
     Active Substance: OCRELIZUMAB
     Indication: MULTIPLE SCLEROSIS
     Route: 042
     Dates: start: 20180314, end: 20180328
  2. AERIUS [Concomitant]
     Route: 048
     Dates: start: 20190424, end: 20190426
  3. PREDNISOLONE. [Concomitant]
     Active Substance: PREDNISOLONE
     Route: 042
     Dates: start: 20180410, end: 20180410
  4. RANITIDINE. [Concomitant]
     Active Substance: RANITIDINE
     Route: 048
     Dates: start: 20181021, end: 20181023
  5. RANITIDINE. [Concomitant]
     Active Substance: RANITIDINE
     Route: 048
     Dates: start: 20180313, end: 20180315
  6. CBD OIL [Concomitant]
     Active Substance: CANNABIDIOL\HERBALS
     Dosage: DEFINITION OF THE INTERVAL: AS REQUIRED
     Dates: start: 201910
  7. AERIUS [Concomitant]
     Route: 048
     Dates: start: 20180327, end: 20180329
  8. RANITIDINE. [Concomitant]
     Active Substance: RANITIDINE
     Route: 048
     Dates: start: 20180409, end: 20180411
  9. DEKRISTOL [Concomitant]
     Active Substance: CHOLECALCIFEROL
     Indication: VITAMIN D DEFICIENCY
     Route: 048
     Dates: start: 20180222
  10. PREDNISOLONE. [Concomitant]
     Active Substance: PREDNISOLONE
     Route: 048
     Dates: start: 20181022, end: 20181022
  11. OCRELIZUMAB. [Suspect]
     Active Substance: OCRELIZUMAB
     Route: 042
     Dates: start: 20181022
  12. AERIUS [Concomitant]
     Route: 048
     Dates: start: 20180409, end: 20180411
  13. PREDNISOLUT [Concomitant]
     Active Substance: PREDNISOLONE
     Route: 042
     Dates: start: 20180314, end: 20180314
  14. PREDNISOLONE. [Concomitant]
     Active Substance: PREDNISOLONE
     Route: 042
     Dates: start: 20180328, end: 20180328
  15. CHLORMADINON [Concomitant]
     Active Substance: CHLORMADINONE ACETATE
     Indication: ABDOMINAL DISCOMFORT
     Route: 048
  16. PREDNISOLONE. [Concomitant]
     Active Substance: PREDNISOLONE
     Route: 042
     Dates: start: 20190425, end: 20190425
  17. RANITIDINE. [Concomitant]
     Active Substance: RANITIDINE
     Route: 048
     Dates: start: 20180327, end: 20180329
  18. RANITIDINE. [Concomitant]
     Active Substance: RANITIDINE
     Route: 048
     Dates: start: 20190424, end: 20190426
  19. IBUPROFEN. [Concomitant]
     Active Substance: IBUPROFEN
     Indication: PAIN
     Route: 048
  20. AERIUS [Concomitant]
     Route: 048
     Dates: start: 20180313, end: 20180315
  21. AERIUS [Concomitant]
     Route: 048
     Dates: start: 20181021, end: 20181023
  22. PANTOPRAZOLE [Concomitant]
     Active Substance: PANTOPRAZOLE
     Indication: PROPHYLAXIS
     Dosage: AS NEEDED
     Route: 048
     Dates: start: 201802, end: 201907

REACTIONS (2)
  - Nasopharyngitis [Unknown]
  - Genital herpes [Recovered/Resolved]

NARRATIVE: CASE EVENT DATE: 20180529
